FAERS Safety Report 10215710 (Version 1)
Quarter: 2014Q2

REPORT INFORMATION
  Report Type: Spontaneous
  Country: US (occurrence: US)
  Receive Date: 20140604
  Receipt Date: 20140604
  Transmission Date: 20141212
  Serious: Yes (Other)
  Sender: FDA-Public Use
  Company Number: 2014SP001644

PATIENT
  Sex: Male

DRUGS (2)
  1. CARBOPLATIN [Suspect]
     Indication: NEOPLASM MALIGNANT
  2. PACLITAXEL [Suspect]
     Indication: NEOPLASM MALIGNANT

REACTIONS (3)
  - Drug ineffective [Unknown]
  - Disease progression [Unknown]
  - Neoplasm malignant [Unknown]
